FAERS Safety Report 4907049-0 (Version None)
Quarter: 2006Q1

REPORT INFORMATION
  Report Type: 
  Country: None (occurrence: None)
  Receive Date: 20060207
  Receipt Date: 20060126
  Transmission Date: 20060701
  Serious: Yes (Hospitalization)
  Sender: FDA-Public Use
  Company Number: SUS1-2006-00087

PATIENT
  Age: 66 Year
  Sex: Male

DRUGS (1)
  1. CARBATROL [Suspect]
     Indication: CONVULSION
     Dosage: 200 MG 3 CAP 2X/DAY, ORAL
     Route: 048

REACTIONS (5)
  - DIZZINESS [None]
  - DRUG LEVEL INCREASED [None]
  - FEELING ABNORMAL [None]
  - LOSS OF CONSCIOUSNESS [None]
  - VENTRICULAR ARRHYTHMIA [None]
